FAERS Safety Report 16712593 (Version 2)
Quarter: 2019Q3

REPORT INFORMATION
  Report Type: Spontaneous
  Country: IT (occurrence: IT)
  Receive Date: 20190816
  Receipt Date: 20190903
  Transmission Date: 20191004
  Serious: Yes (Hospitalization)
  Sender: FDA-Public Use
  Company Number: PHHY2019IT187158

PATIENT
  Age: 84 Year
  Sex: Male

DRUGS (1)
  1. ACETYLSALICYLIC ACID [Suspect]
     Active Substance: ASPIRIN
     Indication: CARDIAC ANEURYSM
     Dosage: UNK
     Route: 065

REACTIONS (7)
  - Haematoma muscle [Recovering/Resolving]
  - Pharyngeal haematoma [Recovered/Resolved]
  - Abdominal pain lower [Unknown]
  - Muscle haemorrhage [Recovered/Resolved]
  - Product use in unapproved indication [Unknown]
  - Pain in extremity [Unknown]
  - Skin haemorrhage [Recovered/Resolved]
